FAERS Safety Report 8885760 (Version 1)
Quarter: 2012Q4

REPORT INFORMATION
  Report Type: 
  Country: US (occurrence: US)
  Receive Date: 20121102
  Receipt Date: 20121102
  Transmission Date: 20130627
  Serious: No
  Sender: FDA-Public Use
  Company Number: US-009507513-1210USA014736

PATIENT
  Age: 31 Year
  Sex: Female
  Weight: 58.5 kg

DRUGS (1)
  1. NUVARING [Suspect]
     Indication: CONTRACEPTION
     Dosage: 3 week, 1 week ring free break
     Route: 067
     Dates: start: 201204

REACTIONS (1)
  - Inappropriate schedule of drug administration [Unknown]
